FAERS Safety Report 17620438 (Version 3)
Quarter: 2020Q3

REPORT INFORMATION
  Report Type: Spontaneous
  Country: JP (occurrence: JP)
  Receive Date: 20200403
  Receipt Date: 20200702
  Transmission Date: 20201102
  Serious: Yes (Hospitalization, Other)
  Sender: FDA-Public Use
  Company Number: JP-BEH-2020113789

PATIENT
  Age: 71 Year
  Sex: Male
  Weight: 65 kg

DRUGS (18)
  1. HIZENTRA [Suspect]
     Active Substance: HUMAN IMMUNOGLOBULIN G
     Dosage: 4 GRAM, TIW
     Route: 058
     Dates: start: 20190917, end: 20191126
  2. HIZENTRA [Suspect]
     Active Substance: HUMAN IMMUNOGLOBULIN G
     Dosage: 4 GRAM, BIW
     Route: 058
     Dates: start: 20191210, end: 20200115
  3. MAGMITT [Concomitant]
     Active Substance: MAGNESIUM OXIDE
     Indication: CONSTIPATION
     Dosage: 660 MILLIGRAM, BID (MORNING AND EVENING)
     Route: 048
     Dates: start: 20190414
  4. LANSOPRAZOLE. [Concomitant]
     Active Substance: LANSOPRAZOLE
     Dosage: 15 MILLIGRAM, QD (MORNING)
     Route: 048
     Dates: start: 20180316
  5. PREDONINE [Concomitant]
     Active Substance: PREDNISOLONE
     Dosage: 15 MILLIGRAM, QD (MORNING)
     Route: 048
     Dates: start: 20180331
  6. HIZENTRA [Suspect]
     Active Substance: HUMAN IMMUNOGLOBULIN G
     Indication: CHRONIC INFLAMMATORY DEMYELINATING POLYRADICULONEUROPATHY
     Dosage: 4 GRAM, TID
     Route: 058
     Dates: start: 20190806, end: 20190806
  7. HIZENTRA [Suspect]
     Active Substance: HUMAN IMMUNOGLOBULIN G
     Dosage: 4 GRAM, BIW
     Route: 058
     Dates: start: 20190819, end: 20190826
  8. METGLUCO [Concomitant]
     Active Substance: METFORMIN HYDROCHLORIDE
     Indication: DIABETES MELLITUS MANAGEMENT
     Dosage: 500 MILLIGRAM, BID (MORNING AND EVENING)
     Route: 048
     Dates: start: 20191203
  9. SPIRONOLACTONE. [Concomitant]
     Active Substance: SPIRONOLACTONE
     Dosage: 25 MILLIGRAM, QD (MORNING)
     Route: 048
     Dates: start: 20180316
  10. BAYASPIRIN [Concomitant]
     Active Substance: ASPIRIN
     Dosage: UNK, QD (MORNING)
     Route: 048
     Dates: start: 20180316
  11. JANUVIA [Concomitant]
     Active Substance: SITAGLIPTIN PHOSPHATE
     Dosage: 20 MILLIGRAM, QD (MORNING)
     Route: 048
     Dates: start: 20180316
  12. AMLODIPINE BESILATE [Concomitant]
     Active Substance: AMLODIPINE BESYLATE
     Indication: HYPERTENSION
     Dosage: 5 MILLIGRAM, QD (MORNING)
     Route: 048
     Dates: start: 20180419
  13. HIZENTRA [Suspect]
     Active Substance: HUMAN IMMUNOGLOBULIN G
     Indication: MOTOR DYSFUNCTION
     Dosage: 4 GRAM, BID
     Route: 058
     Dates: start: 20190805, end: 20190805
  14. HIZENTRA [Suspect]
     Active Substance: HUMAN IMMUNOGLOBULIN G
     Dosage: 4 GRAM, TIW
     Route: 058
     Dates: start: 20191209, end: 20200120
  15. HIZENTRA [Suspect]
     Active Substance: HUMAN IMMUNOGLOBULIN G
     Dosage: 4 GRAM, BIW
     Route: 058
     Dates: start: 20190916, end: 20191127
  16. PREDONINE [Concomitant]
     Active Substance: PREDNISOLONE
     Indication: CHRONIC INFLAMMATORY DEMYELINATING POLYRADICULONEUROPATHY
     Dosage: 20 MILLIGRAM, QD (MORNING)
     Route: 048
     Dates: start: 20180606, end: 20181230
  17. REBAMIPIDE [Concomitant]
     Active Substance: REBAMIPIDE
     Indication: GASTROINTESTINAL DISORDER PROPHYLAXIS
     Dosage: UNK, QD (MORNING)
     Route: 048
     Dates: start: 20180606
  18. HIZENTRA [Suspect]
     Active Substance: HUMAN IMMUNOGLOBULIN G
     Dosage: 4 GRAM, TIW
     Route: 058
     Dates: start: 20190820, end: 20190827

REACTIONS (5)
  - Platelet count decreased [Recovered/Resolved]
  - Pyrexia [Unknown]
  - Haemorrhage subcutaneous [Recovered/Resolved]
  - Haemorrhagic diathesis [Recovered/Resolved]
  - Internal haemorrhage [Recovered/Resolved]

NARRATIVE: CASE EVENT DATE: 20191029
